FAERS Safety Report 4618334-4 (Version None)
Quarter: 2005Q1

REPORT INFORMATION
  Report Type: 
  Country: None (occurrence: None)
  Receive Date: 20050323
  Receipt Date: 20050309
  Transmission Date: 20050727
  Serious: Yes (Death, Hospitalization)
  Sender: FDA-Public Use
  Company Number: 2005AP01364

PATIENT
  Age: 80 Year
  Sex: Female
  Weight: 42 kg

DRUGS (20)
  1. IRESSA [Suspect]
     Indication: NON-SMALL CELL LUNG CANCER
     Dosage: 250 MG DAILY PO
     Route: 048
     Dates: start: 20050113, end: 20050223
  2. MABLIN [Suspect]
     Indication: CHRONIC MYELOMONOCYTIC LEUKAEMIA
     Dosage: 1 MG DAILY PO
     Route: 048
     Dates: start: 20050112, end: 20050223
  3. PAROTIN [Concomitant]
  4. ROHYPNOL [Concomitant]
  5. DIGOSIN [Concomitant]
  6. PRIMPERAN TAB [Concomitant]
  7. ERSIBON [Concomitant]
  8. KADIAN [Concomitant]
  9. TORSEMIDE [Concomitant]
  10. GEBEN [Concomitant]
  11. VITAMEDIN [Concomitant]
  12. AMINOFLUID [Concomitant]
  13. WHITE PETROLATUM [Concomitant]
  14. OPSO [Concomitant]
  15. AZUNOL [Concomitant]
  16. METHADERN LOTION [Concomitant]
  17. KARY UNI [Concomitant]
  18. SANCOBA [Concomitant]
  19. VINORELBINE TARTRATE [Concomitant]
  20. GEMCITABINE [Concomitant]

REACTIONS (13)
  - ANAEMIA [None]
  - ARRHYTHMIA [None]
  - CARDIAC FAILURE [None]
  - CONDITION AGGRAVATED [None]
  - DIARRHOEA [None]
  - HYPOALBUMINAEMIA [None]
  - PAIN [None]
  - PERFORMANCE STATUS DECREASED [None]
  - PNEUMOCYSTIS JIROVECI PNEUMONIA [None]
  - RASH [None]
  - RESPIRATORY ARREST [None]
  - RESPIRATORY FAILURE [None]
  - THROMBOCYTOPENIA [None]
